FAERS Safety Report 6131471-0 (Version None)
Quarter: 2009Q1

REPORT INFORMATION
  Report Type: 
  Country: None (occurrence: None)
  Receive Date: 20090325
  Receipt Date: 20080805
  Transmission Date: 20090719
  Serious: No
  Sender: FDA-Public Use
  Company Number: US-BRISTOL-MYERS SQUIBB COMPANY-14290449

PATIENT
  Age: 61 Year
  Sex: Male
  Weight: 77 kg

DRUGS (2)
  1. ERBITUX [Suspect]
     Indication: TONSIL CANCER
     Dates: end: 20060601
  2. RADIATION THERAPY [Suspect]

REACTIONS (4)
  - ANOREXIA [None]
  - RASH [None]
  - SKIN DISORDER [None]
  - WEIGHT DECREASED [None]
